FAERS Safety Report 19236159 (Version 1)
Quarter: 2021Q2

REPORT INFORMATION
  Report Type: Spontaneous
  Country: BG (occurrence: BG)
  Receive Date: 20210510
  Receipt Date: 20210510
  Transmission Date: 20210717
  Serious: Yes (Death)
  Sender: FDA-Public Use
  Company Number: NVSC2021BG103955

PATIENT
  Age: 83 Year
  Sex: Female

DRUGS (1)
  1. ENTRESTO [Suspect]
     Active Substance: SACUBITRIL\VALSARTAN
     Indication: CARDIAC FAILURE
     Dosage: 1 DF (49/51MG: SACUBITRIL 48.6 MG, VALSARTAN 51.4 MG), BID (FOR NEARLY 3 YEARS)
     Route: 048
     Dates: start: 2018

REACTIONS (1)
  - Death [Fatal]
